FAERS Safety Report 19760094 (Version 1)
Quarter: 2021Q3

REPORT INFORMATION
  Report Type: Spontaneous
  Country: CA (occurrence: CA)
  Receive Date: 20210830
  Receipt Date: 20210830
  Transmission Date: 20211014
  Serious: Yes (Other)
  Sender: FDA-Public Use
  Company Number: CA-BAUSCH-BL-2021-028299

PATIENT
  Age: 72 Year
  Sex: Male
  Weight: 97 kg

DRUGS (9)
  1. FORMOTEROL FUMARATE;MOMETASONE FUROATE [Suspect]
     Active Substance: FORMOTEROL FUMARATE\MOMETASONE FUROATE
     Indication: PRODUCT USED FOR UNKNOWN INDICATION
     Route: 065
  2. MEPOLIZUMAB [Suspect]
     Active Substance: MEPOLIZUMAB
     Indication: ASTHMA
     Route: 042
  3. SALBUTAMOL SULFATE [Suspect]
     Active Substance: ALBUTEROL SULFATE
     Indication: PRODUCT USED FOR UNKNOWN INDICATION
     Route: 065
  4. TIOTROPIUM BROMIDE [Suspect]
     Active Substance: TIOTROPIUM BROMIDE
     Indication: PRODUCT USED FOR UNKNOWN INDICATION
     Route: 065
  5. ENBREL [Suspect]
     Active Substance: ETANERCEPT
     Indication: RHEUMATOID ARTHRITIS
     Route: 065
  6. PREDNISONE. [Suspect]
     Active Substance: PREDNISONE
     Indication: PRODUCT USED FOR UNKNOWN INDICATION
     Route: 065
  7. AMOXICILLIN TRIHYDRATE [Suspect]
     Active Substance: AMOXICILLIN
     Indication: PRODUCT USED FOR UNKNOWN INDICATION
     Route: 065
  8. AZITHROMYCIN ANHYDROUS. [Suspect]
     Active Substance: AZITHROMYCIN ANHYDROUS
     Indication: PRODUCT USED FOR UNKNOWN INDICATION
     Route: 065
  9. FUROSEMIDE. [Suspect]
     Active Substance: FUROSEMIDE
     Indication: PRODUCT USED FOR UNKNOWN INDICATION
     Route: 065

REACTIONS (38)
  - Bronchitis haemophilus [Unknown]
  - Increased bronchial secretion [Unknown]
  - Peripheral swelling [Unknown]
  - Pulmonary congestion [Unknown]
  - Rib fracture [Unknown]
  - Drug dependence [Unknown]
  - Exposure to allergen [Unknown]
  - Rheumatoid arthritis [Unknown]
  - Sputum increased [Unknown]
  - Wheezing [Unknown]
  - Nasopharyngitis [Unknown]
  - Rhinitis allergic [Unknown]
  - Bronchiectasis [Unknown]
  - Cardiac failure congestive [Unknown]
  - Dyspnoea exertional [Unknown]
  - Infection [Unknown]
  - Interstitial lung disease [Unknown]
  - Obstructive airways disorder [Unknown]
  - Off label use [Unknown]
  - Blood count abnormal [Unknown]
  - Bronchial wall thickening [Unknown]
  - Immunosuppression [Unknown]
  - Pleural fibrosis [Unknown]
  - Asthma [Unknown]
  - Condition aggravated [Unknown]
  - Productive cough [Unknown]
  - Weight increased [Unknown]
  - Arthritis [Unknown]
  - Pollakiuria [Unknown]
  - Sputum discoloured [Unknown]
  - Viral infection [Unknown]
  - Cough [Unknown]
  - Bronchial neoplasm benign [Unknown]
  - Chronic obstructive pulmonary disease [Unknown]
  - Malaise [Unknown]
  - Pulmonary fibrosis [Unknown]
  - Upper-airway cough syndrome [Unknown]
  - Type 2 diabetes mellitus [Unknown]
